FAERS Safety Report 4557700-2 (Version None)
Quarter: 2005Q1

REPORT INFORMATION
  Report Type: 
  Country: None (occurrence: None)
  Receive Date: 20050103
  Receipt Date: 20041109
  Transmission Date: 20050727
  Serious: Yes (Other)
  Sender: FDA-Public Use
  Company Number: 2004UW18219

PATIENT
  Age: 69 Year
  Sex: Male
  Weight: 85.2762 kg

DRUGS (12)
  1. CRESTOR [Suspect]
     Indication: DYSLIPIDAEMIA
     Dosage: 5 MG PO
     Route: 048
     Dates: start: 20040730, end: 20040826
  2. FLUOXETINE [Concomitant]
  3. FUROSEMIDE [Concomitant]
  4. LISINOPRIL [Concomitant]
  5. FLUTICASONE/SALMETEROL [Concomitant]
  6. CROMOLYN SODIUM [Concomitant]
  7. ALBUTEROL [Concomitant]
  8. TRAZODONE HCL [Concomitant]
  9. NITROGLYCERIN [Concomitant]
  10. ERYTRHOPOIETIN [Concomitant]
  11. LANSOPRAZOLE [Concomitant]
  12. NEPHROCAPS [Concomitant]

REACTIONS (3)
  - ALBUMIN URINE PRESENT [None]
  - CREATININE RENAL CLEARANCE INCREASED [None]
  - PROTEIN URINE PRESENT [None]
